FAERS Safety Report 8051852-8 (Version None)
Quarter: 2012Q1

REPORT INFORMATION
  Report Type: 
  Country: None (occurrence: None)
  Receive Date: 20120111
  Receipt Date: 20111226
  Transmission Date: 20120608
  Serious: Yes (Other)
  Sender: FDA-Public Use
  Company Number: 2011P1015246

PATIENT
  Age: 55 Year
  Sex: Female
  Weight: 42.1845 kg

DRUGS (4)
  1. XANAX [Concomitant]
  2. ATIVAN [Concomitant]
  3. FENTANYL CITRATE [Suspect]
     Indication: FIBROMYALGIA
     Dosage: 1 PATCH;Q96H;TDER
     Route: 062
     Dates: start: 20100101
  4. FENTANYL CITRATE [Suspect]
     Indication: PAIN
     Dosage: 1 PATCH;Q96H;TDER
     Route: 062
     Dates: start: 20100101

REACTIONS (4)
  - ABASIA [None]
  - SUICIDAL IDEATION [None]
  - FALL [None]
  - DRUG INEFFECTIVE [None]
